FAERS Safety Report 7611776 (Version 2)
Quarter: 2013Q2

REPORT INFORMATION
  Report Type: Spontaneous
  Country: FR (occurrence: FR)
  Receive Date: 20100929
  Receipt Date: 20130410
  Transmission Date: 20140414
  Serious: Yes (Hospitalization)
  Sender: FDA-Public Use
  Company Number: FR-BRISTOL-MYERS SQUIBB COMPANY-15306749

PATIENT
  Age: 68 Year
  Sex: Male

DRUGS (6)
  1. COAPROVEL FILM-COATED TABS 300/12.5 MG [Suspect]
     Dates: end: 20100504
  2. METFORMIN HCL [Suspect]
     Dosage: DF 850 MG
     Route: 048
     Dates: end: 20100504
  3. BYETTA [Suspect]
     Route: 058
     Dates: start: 20100217, end: 20100503
  4. DIAMICRON [Suspect]
     Dosage: DIAMICRON 30 MG
     Route: 048
     Dates: end: 20100504
  5. INEXIUM [Suspect]
     Route: 048
     Dates: end: 20100504
  6. LEVEMIR [Suspect]
     Route: 058
     Dates: end: 20100503

REACTIONS (2)
  - Blood creatinine increased [Recovered/Resolved]
  - Off label use [Recovered/Resolved]
